FAERS Safety Report 8844553 (Version 2)
Quarter: 2013Q1

REPORT INFORMATION
  Report Type: Spontaneous
  Country: NL (occurrence: None)
  Receive Date: 20121012
  Receipt Date: 20121212
  Transmission Date: 20140127
  Serious: Yes (Life-Threatening, Hospitalization, Disabling, Other)
  Sender: FDA-Public Use
  Company Number: DSM-2012-01066

PATIENT
  Age: 60 Year
  Sex: Male
  Weight: 115 kg

DRUGS (3)
  1. OLMETEC (OLMESARTAN MEDOXOMIL) [Suspect]
     Indication: HYPERTENSION
     Route: 048
     Dates: end: 20120916
  2. METFORMIN (METFORMIN) [Suspect]
     Indication: TYPE 2 DIABETES MELLITUS
     Dosage: 1000 MG (500 MG, 2 IN 1 D), ORAL
     Route: 048
     Dates: end: 20120916
  3. SIMVASTATIN (SIMVASTATIN) (10 MILLIGRAM, TABLET) (SIMVASTATIN) [Concomitant]

REACTIONS (4)
  - Suicide attempt [None]
  - Intentional overdose [None]
  - Renal failure acute [None]
  - Haemodialysis [None]
